FAERS Safety Report 8112979-5 (Version None)
Quarter: 2012Q1

REPORT INFORMATION
  Report Type: 
  Country: None (occurrence: None)
  Receive Date: 20120203
  Receipt Date: 20120123
  Transmission Date: 20120608
  Serious: Yes (Hospitalization)
  Sender: FDA-Public Use
  Company Number: CA-ELI_LILLY_AND_COMPANY-CA201110005784

PATIENT
  Sex: Female

DRUGS (18)
  1. CALCIUM CARBONATE [Concomitant]
     Dosage: UNK, UNKNOWN
     Route: 065
  2. LEVOTHYROXINE SODIUM [Concomitant]
     Dosage: UNK, UNKNOWN
     Route: 065
  3. CYCLOSPORINE [Concomitant]
     Dosage: UNK, UNKNOWN
     Route: 065
  4. FORTEO [Suspect]
     Indication: OSTEOPOROSIS
     Dosage: 20 UG, QD
     Route: 058
     Dates: start: 20100514, end: 20110501
  5. ASPIRIN [Concomitant]
     Dosage: UNK, UNKNOWN
     Route: 065
  6. ZOLOFT [Concomitant]
     Dosage: UNK, UNKNOWN
     Route: 065
  7. HYDROMORPHONE HCL [Concomitant]
     Dosage: UNK, UNKNOWN
     Route: 065
  8. LORAZEPAM [Concomitant]
     Dosage: UNK, UNKNOWN
     Route: 065
  9. FERROUS GLUCONATE [Concomitant]
     Dosage: UNK, UNKNOWN
     Route: 065
  10. LANSOPRAZOLE [Concomitant]
     Dosage: UNK, UNKNOWN
     Route: 065
  11. POTASSIUM CHLORIDE [Concomitant]
     Dosage: UNK, UNKNOWN
     Route: 065
  12. GABAPENTIN [Concomitant]
     Dosage: UNK, UNKNOWN
     Route: 065
  13. DIGOXIN [Concomitant]
     Dosage: UNK, UNKNOWN
     Route: 065
  14. DOCUSATE SODIUM [Concomitant]
     Dosage: UNK, UNKNOWN
     Route: 065
  15. CLOTRIMAZOLE [Concomitant]
     Dosage: UNK, UNKNOWN
     Route: 065
  16. METOPROLOL [Concomitant]
     Dosage: UNK, UNKNOWN
     Route: 065
  17. PREDNISONE TAB [Concomitant]
     Dosage: UNK, UNKNOWN
     Route: 065
  18. VITAMIN D [Concomitant]
     Dosage: UNK, UNKNOWN
     Route: 065

REACTIONS (2)
  - GASTROENTERITIS [None]
  - MALAISE [None]
